FAERS Safety Report 4325291-7 (Version None)
Quarter: 2004Q1

REPORT INFORMATION
  Report Type: 
  Country: None (occurrence: None)
  Receive Date: 20040324
  Receipt Date: 20040309
  Transmission Date: 20041129
  Serious: Yes (Hospitalization, Other)
  Sender: FDA-Public Use
  Company Number: DE-SHR-04-022393

PATIENT
  Age: 56 Year
  Sex: Male

DRUGS (1)
  1. ULTRAVIST 370 [Suspect]
     Indication: ARTERIOGRAM CORONARY
     Dosage: 135 ML, 1 DOSE, INTRA-ARTERIAL
     Route: 013

REACTIONS (11)
  - AGITATION [None]
  - AMNESIA [None]
  - BLINDNESS CORTICAL [None]
  - BRAIN SCAN ABNORMAL [None]
  - CEREBRAL ARTERY OCCLUSION [None]
  - COMA [None]
  - CONFUSIONAL STATE [None]
  - DISORIENTATION [None]
  - DYSARTHRIA [None]
  - EMBOLISM [None]
  - ISCHAEMIC CEREBRAL INFARCTION [None]
